FAERS Safety Report 9307482 (Version 1)
Quarter: 2013Q2

REPORT INFORMATION
  Report Type: Spontaneous
  Country: US (occurrence: US)
  Receive Date: 20130524
  Receipt Date: 20130524
  Transmission Date: 20140414
  Serious: Yes (Other)
  Sender: FDA-Public Use
  Company Number: US-ROCHE-1225564

PATIENT
  Sex: Female

DRUGS (1)
  1. BONIVA [Suspect]
     Indication: OSTEOPENIA
     Route: 048
     Dates: start: 2008

REACTIONS (3)
  - Multiple sclerosis [Not Recovered/Not Resolved]
  - Deafness [Not Recovered/Not Resolved]
  - Nervous system disorder [Not Recovered/Not Resolved]
